FAERS Safety Report 11894939 (Version 1)
Quarter: 2016Q1

REPORT INFORMATION
  Report Type: Spontaneous
  Country: US (occurrence: None)
  Receive Date: 20160106
  Receipt Date: 20160106
  Transmission Date: 20160526
  Serious: Yes (Disabling, Other)
  Sender: FDA-Public Use
  Company Number: None

PATIENT
  Age: 72 Year
  Sex: Male
  Weight: 106.6 kg

DRUGS (30)
  1. TAMSULOSIN [Concomitant]
     Active Substance: TAMSULOSIN
  2. FLUTACASONE HCL [Concomitant]
  3. ASTRAGALUS [Concomitant]
  4. FISH OIL [Concomitant]
     Active Substance: FISH OIL
  5. CIALIS [Concomitant]
     Active Substance: TADALAFIL
  6. BLACK CURRENT OIL [Concomitant]
  7. SELENIUM [Concomitant]
     Active Substance: SELENIUM
  8. FAMOTIDINE. [Concomitant]
     Active Substance: FAMOTIDINE
  9. ASPIRIN. [Concomitant]
     Active Substance: ASPIRIN
  10. SAW PALMETTO [Concomitant]
     Active Substance: SAW PALMETTO
  11. VITAMIN D [Concomitant]
     Active Substance: CHOLECALCIFEROL
  12. TURMERIC [Concomitant]
     Active Substance: TURMERIC
  13. METAMUCIL [Concomitant]
     Active Substance: PLANTAGO SEED
  14. GINKO BILOBA [Concomitant]
     Active Substance: GINKGO
  15. VITAMIN E [Concomitant]
     Active Substance: .ALPHA.-TOCOPHEROL
  16. CRANBERRY. [Concomitant]
     Active Substance: CRANBERRY
  17. CETIRIZINE [Concomitant]
     Active Substance: CETIRIZINE HYDROCHLORIDE
  18. LANSOPRAZOLE. [Concomitant]
     Active Substance: LANSOPRAZOLE
  19. VITAMIN C [Concomitant]
     Active Substance: ASCORBIC ACID
  20. HUMILOG [Concomitant]
  21. GLIMEPERIDE [Concomitant]
     Active Substance: GLIMEPIRIDE
  22. JARDIANCE/METFORMIN [Concomitant]
  23. COQ10 [Concomitant]
     Active Substance: UBIDECARENONE
  24. COD LIVER OIL [Concomitant]
     Active Substance: COD LIVER OIL
  25. LISINOPRIL. [Concomitant]
     Active Substance: LISINOPRIL
  26. PRAVASTATIN [Concomitant]
     Active Substance: PRAVASTATIN\PRAVASTATIN SODIUM
  27. MULTIVITAMIN [Concomitant]
     Active Substance: VITAMINS
  28. ROYAL JELLY [Concomitant]
     Active Substance: ROYAL JELLY
  29. JANUMET [Suspect]
     Active Substance: METFORMIN HYDROCHLORIDE\SITAGLIPTIN PHOSPHATE
     Indication: TYPE 2 DIABETES MELLITUS
  30. INSTAFLEX [Concomitant]
     Active Substance: DIETARY SUPPLEMENT

REACTIONS (1)
  - Trigger finger [None]

NARRATIVE: CASE EVENT DATE: 20150914
